FAERS Safety Report 9183680 (Version 1)
Quarter: 2013Q1

REPORT INFORMATION
  Report Type: Spontaneous
  Country: US (occurrence: US)
  Receive Date: 20130322
  Receipt Date: 20130322
  Transmission Date: 20140127
  Serious: No
  Sender: FDA-Public Use
  Company Number: US-BRISTOL-MYERS SQUIBB COMPANY-16581431

PATIENT
  Age: 53 Year
  Sex: Male

DRUGS (5)
  1. ERBITUX SOLN FOR INF [Suspect]
     Indication: NEOPLASM MALIGNANT
  2. KEPPRA [Concomitant]
  3. POTASSIUM [Concomitant]
  4. MAGNESIUM [Concomitant]
  5. VITAMINS [Concomitant]

REACTIONS (6)
  - Weight decreased [Unknown]
  - Blood potassium decreased [Unknown]
  - Blood magnesium decreased [Unknown]
  - Rash [Unknown]
  - Sleep disorder [Unknown]
  - Depressed mood [Unknown]
